FAERS Safety Report 6310520-0 (Version None)
Quarter: 2009Q3

REPORT INFORMATION
  Report Type: 
  Country: None (occurrence: None)
  Receive Date: 20090814
  Receipt Date: 20090804
  Transmission Date: 20100115
  Serious: Yes (Hospitalization)
  Sender: FDA-Public Use
  Company Number: FR-ELI_LILLY_AND_COMPANY-FR200908000771

PATIENT
  Age: 71 Year
  Sex: Female

DRUGS (2)
  1. FORTEO [Suspect]
     Indication: OSTEOPOROSIS
     Dosage: 20 UG, DAILY (1/D)
     Route: 065
     Dates: start: 20081104, end: 20090530
  2. NEXIUM [Concomitant]
     Dosage: 20 MG, DAILY (1/D)

REACTIONS (3)
  - OESOPHAGEAL RUPTURE [None]
  - PYREXIA [None]
  - VOMITING [None]
